FAERS Safety Report 22088706 (Version 1)
Quarter: 2023Q1

REPORT INFORMATION
  Report Type: Spontaneous
  Country: US (occurrence: US)
  Receive Date: 20230313
  Receipt Date: 20230313
  Transmission Date: 20230417
  Serious: Yes (Other)
  Sender: FDA-Public Use
  Company Number: US-GLAXOSMITHKLINE-US2023GSK036481

PATIENT

DRUGS (13)
  1. LAMOTRIGINE [Suspect]
     Active Substance: LAMOTRIGINE
     Indication: Bipolar II disorder
     Dosage: 300 MG, QD
  2. LAMOTRIGINE [Suspect]
     Active Substance: LAMOTRIGINE
     Indication: Affective disorder
     Dosage: 325 MG, 1D
     Dates: start: 2016, end: 2018
  3. LAMOTRIGINE [Suspect]
     Active Substance: LAMOTRIGINE
     Dosage: 75 MG, 1D
  4. LAMOTRIGINE [Suspect]
     Active Substance: LAMOTRIGINE
     Dosage: 35 MG, QD
     Dates: end: 2022
  5. BUPROPION [Concomitant]
     Active Substance: BUPROPION
     Indication: Product used for unknown indication
     Dosage: 450 MG, 1D
     Dates: start: 2014
  6. BUPROPION [Concomitant]
     Active Substance: BUPROPION
     Dosage: UNK, RAPIDLY TAPERED
  7. DULOXETINE [Concomitant]
     Active Substance: DULOXETINE
     Indication: Product used for unknown indication
     Dosage: 120 MG, 1D
     Dates: start: 2014
  8. DULOXETINE [Concomitant]
     Active Substance: DULOXETINE
     Dosage: UNK, RAPIDLY TAPERED
  9. GABAPENTIN [Concomitant]
     Active Substance: GABAPENTIN
     Indication: Product used for unknown indication
     Dosage: 3200 MG, 1D
     Dates: start: 2015
  10. GABAPENTIN [Concomitant]
     Active Substance: GABAPENTIN
     Dosage: UNK, RAPIDLY TAPERED
  11. TRAZODONE [Concomitant]
     Active Substance: TRAZODONE HYDROCHLORIDE
     Indication: Product used for unknown indication
     Dosage: 50 MG, 1D, BEDTIME
  12. LITHIUM [Concomitant]
     Active Substance: LITHIUM
     Indication: Affective disorder
     Dosage: UNK
     Dates: start: 2018
  13. VILAZODONE [Concomitant]
     Active Substance: VILAZODONE
     Indication: Affective disorder
     Dosage: UNK

REACTIONS (7)
  - Chorea [Recovered/Resolved]
  - Facial paresis [Unknown]
  - Deafness [Unknown]
  - Sensory loss [Unknown]
  - Gait disturbance [Unknown]
  - Dyskinesia [Unknown]
  - Depression [Unknown]
